FAERS Safety Report 9513784 (Version 1)
Quarter: 2013Q1

REPORT INFORMATION
  Report Type: Spontaneous
  Country: US (occurrence: None)
  Receive Date: 20130305
  Receipt Date: 20130305
  Transmission Date: 20140127
  Serious: Yes (Other)
  Sender: FDA-Public Use
  Company Number: 163-21880-12102355

PATIENT
  Age: 81 Year
  Sex: Male
  Weight: 74.84 kg

DRUGS (8)
  1. REVLIMID (LENALIDOMIDE) (15 MILLIGRAM, CAPSULES) [Suspect]
     Indication: PROSTATE CANCER
     Dosage: 15 MG, 21 IN 28 D, PO
     Route: 048
     Dates: start: 20121009
  2. FENTANYL (FENTANYL) [Concomitant]
  3. WARFARIN (WARFARIN) [Concomitant]
  4. NOVOLOG (INSULIN ASPART) [Concomitant]
  5. LEVEMIR (INSULIN DETERMIR) [Concomitant]
  6. TAMSULOSIN (TAMSULOSIN) [Concomitant]
  7. VITAMIN B12 (CYANOCOBALAMIN) [Concomitant]
  8. OSCAL + VITAMIN D (OTHER VITAMIN PRODUCTS, COMBINATIONS) [Concomitant]

REACTIONS (1)
  - Muscle spasms [None]
